FAERS Safety Report 8443100-1 (Version None)
Quarter: 2012Q2

REPORT INFORMATION
  Report Type: 
  Country: None (occurrence: None)
  Receive Date: 20120615
  Receipt Date: 20120315
  Transmission Date: 20120825
  Serious: Yes (Death)
  Sender: FDA-Public Use
  Company Number: FR-BAXTER-2012BH007831

PATIENT
  Age: 63 Year
  Sex: Male

DRUGS (3)
  1. SOLU-MEDROL [Suspect]
     Route: 065
     Dates: start: 20110607
  2. CYTOXAN [Suspect]
     Route: 042
     Dates: start: 20110607, end: 20110607
  3. SOLU-MEDROL [Suspect]
     Route: 065
     Dates: start: 20110603, end: 20110606

REACTIONS (2)
  - BONE MARROW FAILURE [None]
  - FUNGAL INFECTION [None]
